FAERS Safety Report 8947252 (Version 1)
Quarter: 2012Q4

REPORT INFORMATION
  Report Type: 
  Country: ES (occurrence: ES)
  Receive Date: 20121205
  Receipt Date: 20121205
  Transmission Date: 20130627
  Serious: Yes (Other)
  Sender: FDA-Public Use
  Company Number: ES-MYLANLABS-2012S1024418

PATIENT
  Age: 75 Year
  Sex: Female

DRUGS (8)
  1. THIAMAZOLE [Suspect]
     Indication: HYPERTHYROIDISM
     Dosage: 20 mg/day for three weeks
     Route: 065
  2. THIAMAZOLE [Suspect]
     Indication: HYPERTHYROIDISM
     Dosage: 15 mg/day for three weeks
     Route: 065
  3. CARBIMAZOLE [Suspect]
     Indication: HYPERTHYROIDISM
     Dosage: 15 mg/day
     Route: 065
  4. ATENOLOL [Concomitant]
     Indication: HYPERTENSION
     Route: 065
     Dates: start: 2006
  5. INDAPAMIDE [Concomitant]
     Indication: HYPERTENSION
     Route: 065
     Dates: start: 2006
  6. IBANDRONIC ACID [Concomitant]
     Indication: OSTEOPOROSIS
     Route: 065
     Dates: start: 2008
  7. CALCIUM [Concomitant]
     Indication: OSTEOPOROSIS
     Route: 065
     Dates: start: 2008
  8. DEXAMETHASONE [Concomitant]
     Indication: DERMATITIS ALLERGIC
     Dosage: sometimes administered
     Route: 048

REACTIONS (2)
  - Hepatic necrosis [Recovering/Resolving]
  - Hepatic enzyme increased [Recovered/Resolved]
